FAERS Safety Report 4775154-8 (Version None)
Quarter: 2005Q3

REPORT INFORMATION
  Report Type: 
  Country: None (occurrence: None)
  Receive Date: 20050920
  Receipt Date: 20050910
  Transmission Date: 20060218
  Serious: Yes (Other)
  Sender: FDA-Public Use
  Company Number: 2005081175

PATIENT
  Age: 39 Year
  Sex: Female
  Weight: 86.1834 kg

DRUGS (4)
  1. LIPITOR [Suspect]
     Indication: BLOOD CHOLESTEROL INCREASED
     Dosage: 10 MG (10 MG, 1 IN 1 D)
     Dates: start: 20030724
  2. LIPITOR [Suspect]
     Indication: HYPERLIPIDAEMIA
     Dosage: 10 MG (10 MG, 1 IN 1 D)
     Dates: start: 20030724
  3. SYNTHROID [Concomitant]
  4. RETIN A (TRETINOIN) [Concomitant]

REACTIONS (13)
  - ANTINUCLEAR ANTIBODY POSITIVE [None]
  - DERMATITIS CONTACT [None]
  - DERMATITIS EXFOLIATIVE [None]
  - ECZEMA [None]
  - EOSINOPHIL COUNT INCREASED [None]
  - ERYTHEMA [None]
  - HEART RATE INCREASED [None]
  - HYPOKINESIA [None]
  - OEDEMA PERIPHERAL [None]
  - PHOTOSENSITIVITY REACTION [None]
  - RHEUMATOID FACTOR INCREASED [None]
  - SCAR [None]
  - XEROSIS [None]
